FAERS Safety Report 5453910-0 (Version None)
Quarter: 2007Q3

REPORT INFORMATION
  Report Type: 
  Country: None (occurrence: None)
  Receive Date: 20070917
  Receipt Date: 20070911
  Transmission Date: 20080115
  Serious: Yes (Hospitalization)
  Sender: FDA-Public Use
  Company Number: FR-ASTRAZENECA-2007CG01296

PATIENT

DRUGS (2)
  1. INEXIUM [Suspect]
     Route: 048
     Dates: start: 20060101, end: 20070801
  2. TAHOR [Suspect]
     Dates: start: 20060101, end: 20070801

REACTIONS (2)
  - GAMMA-GLUTAMYLTRANSFERASE INCREASED [None]
  - TRANSAMINASES INCREASED [None]
